FAERS Safety Report 8850491 (Version 2)
Quarter: 2012Q4

REPORT INFORMATION
  Report Type: Report from Study
  Country: DE (occurrence: DE)
  Receive Date: 20121019
  Receipt Date: 20121031
  Transmission Date: 20130627
  Serious: Yes (Hospitalization)
  Sender: FDA-Public Use
  Company Number: DE-ROCHE-1137733

PATIENT
  Age: 72 Year
  Sex: Male
  Weight: 82 kg

DRUGS (22)
  1. BEVACIZUMAB [Suspect]
     Indication: COLON CANCER
     Dosage: date of last dose prior to SAE 04 Oct 2012
     Route: 042
     Dates: start: 20120905, end: 20121008
  2. BEVACIZUMAB [Suspect]
     Indication: RECTAL CANCER
  3. FLUOROURACIL [Suspect]
     Indication: COLON CANCER
     Dosage: date of last dose prior to SAE 04 OCT 2012
     Route: 065
     Dates: start: 20120905, end: 20121008
  4. FLUOROURACIL [Suspect]
     Indication: RECTAL CANCER
  5. IRINOTECAN [Suspect]
     Indication: COLON CANCER
     Dosage: date of last dose prior to SAE 19/Sep/2012
     Route: 065
     Dates: start: 20120905, end: 20121008
  6. IRINOTECAN [Suspect]
     Indication: RECTAL CANCER
     Dosage: date of last dose prior to SAE 04 OCT 2012
     Route: 065
     Dates: start: 20120905, end: 20121008
  7. OXALIPLATIN [Suspect]
     Indication: COLON CANCER
     Dosage: date of last dose prior to SAE 04 OCT 2012
     Route: 065
     Dates: start: 20120905, end: 20121008
  8. OXALIPLATIN [Suspect]
     Indication: RECTAL CANCER
  9. FOLINIC ACID [Suspect]
     Indication: COLON CANCER
     Dosage: last dose proir to SAE on 04/Oct/2012
     Route: 042
     Dates: start: 20120905, end: 20121008
  10. ASS [Concomitant]
     Route: 048
  11. AMLODIPIN [Concomitant]
     Indication: HYPERTENSION
     Route: 048
     Dates: end: 20121006
  12. AMLODIPIN [Concomitant]
     Route: 065
  13. ALLOPURINOL [Concomitant]
     Route: 048
  14. AMPHOTERICIN B [Concomitant]
     Dosage: 4x1 pipette
     Route: 048
     Dates: start: 20120921, end: 20120926
  15. PANTOPRAZOL [Concomitant]
     Route: 048
     Dates: start: 20120921
  16. SIMVASTATIN [Concomitant]
     Route: 065
  17. AMPHOMORONAL [Concomitant]
     Dosage: 3X/d
     Route: 065
  18. FILGRASTIM [Concomitant]
     Dosage: 30 MILL I.E PAUSED
     Route: 065
  19. KALINOR [Concomitant]
     Dosage: EFFERVESCENT TABLETS ACC TO BLOOD VALUE
     Route: 065
  20. RAMIPRIL [Concomitant]
     Indication: HYPERTENSION
     Route: 065
     Dates: end: 20121006
  21. BISOPROLOL [Concomitant]
     Indication: HYPERTENSION
     Route: 065
     Dates: end: 20121006
  22. TORSEMIDE [Concomitant]
     Route: 065

REACTIONS (2)
  - Ventricular fibrillation [Recovered/Resolved with Sequelae]
  - Vomiting [Recovered/Resolved]
